FAERS Safety Report 10214045 (Version 1)
Quarter: 2014Q2

REPORT INFORMATION
  Report Type: Spontaneous
  Country: AR (occurrence: AR)
  Receive Date: 20140603
  Receipt Date: 20140603
  Transmission Date: 20141212
  Serious: Yes (Death)
  Sender: FDA-Public Use
  Company Number: AR-PFIZER INC-2014148593

PATIENT
  Sex: Male

DRUGS (1)
  1. CRIZOTINIB [Suspect]
     Indication: NEOPLASM MALIGNANT

REACTIONS (4)
  - Disease progression [Fatal]
  - Neoplasm malignant [Fatal]
  - Pleural effusion [Fatal]
  - Respiratory failure [Fatal]
